FAERS Safety Report 4502897-3 (Version None)
Quarter: 2004Q4

REPORT INFORMATION
  Report Type: 
  Country: None (occurrence: None)
  Receive Date: 20041116
  Receipt Date: 20041116
  Transmission Date: 20050328
  Serious: Yes (Other)
  Sender: FDA-Public Use
  Company Number: None

PATIENT
  Age: 24 Year
  Sex: Male
  Weight: 79.8 kg

DRUGS (1)
  1. CLOZAPINE [Suspect]

REACTIONS (3)
  - SEDATION [None]
  - SENSORY DISTURBANCE [None]
  - SOMNOLENCE [None]
